FAERS Safety Report 5648572-3 (Version None)
Quarter: 2008Q1

REPORT INFORMATION
  Report Type: 
  Country: None (occurrence: None)
  Receive Date: 20080304
  Receipt Date: 20080228
  Transmission Date: 20080703
  Serious: Yes (Other)
  Sender: FDA-Public Use
  Company Number: B0509744A

PATIENT
  Sex: Male

DRUGS (1)
  1. NIQUITIN CQ 4MG LOZENGE [Suspect]
     Dosage: 4MG PER DAY
     Route: 002

REACTIONS (4)
  - APNOEIC ATTACK [None]
  - CHEST DISCOMFORT [None]
  - CHOKING [None]
  - DYSPNOEA [None]
